FAERS Safety Report 9067249 (Version 1)
Quarter: 2013Q1

REPORT INFORMATION
  Report Type: Report from Study
  Country: US (occurrence: US)
  Receive Date: 20130131
  Receipt Date: 20130131
  Transmission Date: 20140127
  Serious: No
  Sender: FDA-Public Use
  Company Number: US-ABBOTT-12P-163-0999123-00

PATIENT
  Age: 60 Year
  Sex: Female

DRUGS (4)
  1. HUMIRA [Suspect]
     Indication: RHEUMATOID ARTHRITIS
     Route: 058
     Dates: start: 201107
  2. ALPRAZOLAM [Concomitant]
     Indication: NERVOUSNESS
  3. ZYRTEC [Concomitant]
     Indication: HYPERSENSITIVITY
  4. UNKNOWN NASAL SPRAY [Concomitant]
     Indication: PRODUCT USED FOR UNKNOWN INDICATION

REACTIONS (5)
  - Incorrect dose administered [Unknown]
  - Laryngitis [Unknown]
  - Sinusitis [Recovering/Resolving]
  - Bronchitis [Unknown]
  - Cough [Unknown]
